FAERS Safety Report 25811197 (Version 5)
Quarter: 2025Q4

REPORT INFORMATION
  Report Type: Report from Study
  Country: GB (occurrence: GB)
  Receive Date: 20250917
  Receipt Date: 20251211
  Transmission Date: 20260117
  Serious: Yes (Hospitalization, Other)
  Sender: ABBVIE
  Company Number: GB-ABBVIE-6457628

PATIENT
  Age: 40 Year
  Sex: Male
  Weight: 95 kg

DRUGS (6)
  1. HUMIRA [Suspect]
     Active Substance: ADALIMUMAB
     Indication: Colitis ulcerative
     Route: 058
     Dates: start: 20150407, end: 20231010
  2. AMITRIPTYLINE [Concomitant]
     Active Substance: AMITRIPTYLINE
     Indication: Depression
     Route: 048
     Dates: start: 2014
  3. DEVICE [Concomitant]
     Active Substance: DEVICE
     Indication: Obstructive sleep apnoea syndrome
     Dosage: DOSE-90TH PERCENTILE?? ROA- RESPIRATORY (INHALATION)
     Dates: start: 20160523
  4. SERTRALINE [Concomitant]
     Active Substance: SERTRALINE HYDROCHLORIDE
     Indication: Depression
     Route: 048
     Dates: start: 201906
  5. METHYLPHENIDATE [Concomitant]
     Active Substance: METHYLPHENIDATE
     Indication: Attention deficit hyperactivity disorder
     Dosage: TIME INTERVAL: 0.33333333 DAYS
     Route: 048
     Dates: start: 20200722
  6. IDACIO [Concomitant]
     Active Substance: ADALIMUMAB-AACF
     Indication: Colitis ulcerative
     Route: 058
     Dates: start: 20231010

REACTIONS (2)
  - Seizure [Recovered/Resolved]
  - Glioma [Not Recovered/Not Resolved]

NARRATIVE: CASE EVENT DATE: 20250907
